FAERS Safety Report 5429198-3 (Version None)
Quarter: 2007Q3

REPORT INFORMATION
  Report Type: 
  Country: None (occurrence: None)
  Receive Date: 20070827
  Receipt Date: 20070827
  Transmission Date: 20080115
  Serious: Yes (Disabling)
  Sender: FDA-Public Use
  Company Number: None

PATIENT
  Age: 31 Year
  Sex: Female
  Weight: 69.8539 kg

DRUGS (3)
  1. TYLENOL [Suspect]
     Indication: COUGH
     Dosage: 2  EVERY 4 HOURS  PO
     Route: 048
     Dates: start: 20070824, end: 20070825
  2. TYLENOL [Suspect]
     Indication: PYREXIA
     Dosage: 2  EVERY 4 HOURS  PO
     Route: 048
     Dates: start: 20070824, end: 20070825
  3. TYLENOL [Suspect]
     Indication: RESPIRATORY DISORDER
     Dosage: 2  EVERY 4 HOURS  PO
     Route: 048
     Dates: start: 20070824, end: 20070825

REACTIONS (2)
  - CARDIAC FLUTTER [None]
  - DIARRHOEA [None]
